FAERS Safety Report 19968796 (Version 1)
Quarter: 2021Q4

REPORT INFORMATION
  Report Type: Spontaneous
  Country: US (occurrence: US)
  Receive Date: 20211019
  Receipt Date: 20211019
  Transmission Date: 20220303
  Serious: No
  Sender: FDA-Public Use
  Company Number: US-PFIZER INC-2021417021

PATIENT
  Age: 68 Year
  Sex: Female
  Weight: 73.48 kg

DRUGS (2)
  1. EXEMESTANE [Suspect]
     Active Substance: EXEMESTANE
     Indication: Neoplasm malignant
     Dosage: UNK, 1X/DAY (A HORMONE PILL EVERY MORNING)
  2. IBRANCE [Concomitant]
     Active Substance: PALBOCICLIB
     Dosage: UNK

REACTIONS (1)
  - Full blood count abnormal [Unknown]
